FAERS Safety Report 7177615-3 (Version None)
Quarter: 2010Q4

REPORT INFORMATION
  Report Type: 
  Country: None (occurrence: None)
  Receive Date: 20101220
  Receipt Date: 20101217
  Transmission Date: 20110411
  Serious: Yes (Hospitalization, Other)
  Sender: FDA-Public Use
  Company Number: US-CEPHALON-2010005828

PATIENT
  Sex: Male
  Weight: 102 kg

DRUGS (2)
  1. TREANDA [Suspect]
     Indication: NON-HODGKIN'S LYMPHOMA
     Route: 042
     Dates: start: 20101104, end: 20101105
  2. RITUXAN [Concomitant]
     Indication: NON-HODGKIN'S LYMPHOMA
     Dates: start: 20101104, end: 20101104

REACTIONS (17)
  - BLOOD URIC ACID INCREASED [None]
  - CHEST PAIN [None]
  - CLOSTRIDIAL INFECTION [None]
  - CONSTIPATION [None]
  - COUGH [None]
  - DIARRHOEA [None]
  - FATIGUE [None]
  - HEADACHE [None]
  - INSOMNIA [None]
  - NAUSEA [None]
  - OEDEMA PERIPHERAL [None]
  - PALPITATIONS [None]
  - PYREXIA [None]
  - PYURIA [None]
  - TUMOUR LYSIS SYNDROME [None]
  - URINE OUTPUT INCREASED [None]
  - WEIGHT DECREASED [None]
